FAERS Safety Report 10921766 (Version 1)
Quarter: 2015Q1

REPORT INFORMATION
  Report Type: Spontaneous
  Country: JP (occurrence: JP)
  Receive Date: 20150317
  Receipt Date: 20150317
  Transmission Date: 20150721
  Serious: Yes (Hospitalization, Other)
  Sender: FDA-Public Use
  Company Number: JP-ACTAVIS-2015-04855

PATIENT
  Age: 51 Year
  Sex: Male

DRUGS (1)
  1. PROPYLTHIOURACIL (UNKNOWN) [Suspect]
     Active Substance: PROPYLTHIOURACIL
     Indication: BASEDOW^S DISEASE
     Dosage: 50 MG, DAILY
     Route: 065

REACTIONS (2)
  - Lupus nephritis [Recovered/Resolved]
  - Vasculitis [Recovered/Resolved]
